FAERS Safety Report 9192691 (Version 1)
Quarter: 2013Q1

REPORT INFORMATION
  Report Type: Spontaneous
  Country: US (occurrence: None)
  Receive Date: 20130325
  Receipt Date: 20130325
  Transmission Date: 20140127
  Serious: Yes (Other)
  Sender: FDA-Public Use
  Company Number: None

PATIENT
  Age: 33 Year
  Sex: Female
  Weight: 53.52 kg

DRUGS (1)
  1. MEDROXYPROGESTERONE ACETATE [Suspect]

REACTIONS (6)
  - Alopecia [None]
  - Vaginal haemorrhage [None]
  - Vaginal odour [None]
  - Headache [None]
  - Mood swings [None]
  - Depression [None]
